FAERS Safety Report 8433324-1 (Version None)
Quarter: 2012Q2

REPORT INFORMATION
  Report Type: 
  Country: None (occurrence: None)
  Receive Date: 20120323
  Receipt Date: 20110825
  Transmission Date: 20120825
  Serious: Yes (Other)
  Sender: FDA-Public Use
  Company Number: 163-21880-11083229

PATIENT
  Age: 74 Year
  Sex: Male
  Weight: 107 kg

DRUGS (2)
  1. REVLIMID [Suspect]
     Indication: MULTIPLE MYELOMA
     Dosage: 15 MG, DAILY FOR 21 DAYS, PO 5 MG, DAILY FOR 21 DAYS, PO
     Dates: start: 20110729
  2. REVLIMID [Suspect]

REACTIONS (2)
  - DYSGEUSIA [None]
  - WEIGHT DECREASED [None]
